FAERS Safety Report 7605718-5 (Version None)
Quarter: 2011Q3

REPORT INFORMATION
  Report Type: 
  Country: None (occurrence: None)
  Receive Date: 20110713
  Receipt Date: 20110708
  Transmission Date: 20111222
  Serious: Yes (Hospitalization)
  Sender: FDA-Public Use
  Company Number: FR-PFIZER INC-2011154225

PATIENT
  Age: 85 Year
  Sex: Male

DRUGS (9)
  1. AMLODIPINE BESYLATE [Suspect]
     Indication: HYPERTENSION
     Dosage: 1 DF, DAILY
     Route: 048
     Dates: end: 20110125
  2. AGOMELATINE [Suspect]
     Dosage: 50 MG, 1X/DAY
     Route: 048
     Dates: end: 20110215
  3. CLOPIDOGREL [Concomitant]
     Dosage: 75 MG, 1X/DAY
     Route: 048
  4. GALANTAMINE HYDROBROMIDE [Suspect]
     Indication: DEMENTIA
     Dosage: 1 DF, DAILY
     Dates: end: 20110203
  5. RABEPRAZOLE [Concomitant]
     Dosage: 20 MG, 1X/DAY
     Route: 048
  6. CALCIUM CARBONATE [Concomitant]
     Dosage: 3 DF, DAILY
     Route: 048
  7. XANAX [Concomitant]
     Dosage: 1 DF, 1X/DAY
     Route: 048
  8. MOVIPREP [Concomitant]
     Dosage: 1 DF, 1X/DAY
     Route: 048
  9. AGOMELATINE [Suspect]
     Indication: DEPRESSION
     Dosage: 25 MG, 1X/DAY
     Route: 048
     Dates: start: 20110103, end: 20110203

REACTIONS (2)
  - MALAISE [None]
  - LOSS OF CONSCIOUSNESS [None]
